FAERS Safety Report 8560325-5 (Version None)
Quarter: 2012Q3

REPORT INFORMATION
  Report Type: 
  Country: None (occurrence: None)
  Receive Date: 20120802
  Receipt Date: 20120719
  Transmission Date: 20120928
  Serious: Yes (Other)
  Sender: FDA-Public Use
  Company Number: GR-ELI_LILLY_AND_COMPANY-GR201207004104

PATIENT
  Age: 50 Year
  Sex: Male

DRUGS (1)
  1. CYMBALTA [Suspect]
     Indication: PANIC DISORDER
     Dosage: 30 MG, QD
     Route: 048
     Dates: start: 20120601, end: 20120710

REACTIONS (3)
  - OFF LABEL USE [None]
  - INTENTIONAL DRUG MISUSE [None]
  - JAUNDICE [None]
